FAERS Safety Report 24684263 (Version 1)
Quarter: 2024Q4

REPORT INFORMATION
  Report Type: Spontaneous
  Country: CN (occurrence: CN)
  Receive Date: 20241202
  Receipt Date: 20241202
  Transmission Date: 20250114
  Serious: Yes (Hospitalization)
  Sender: Haleon PLC
  Company Number: CN-HALEON-2211415

PATIENT
  Age: 85 Year
  Sex: Male
  Weight: 50 kg

DRUGS (1)
  1. VOLTAREN [Suspect]
     Active Substance: DICLOFENAC SODIUM
     Indication: Inflammation
     Dosage: TIME INTERVAL: 0.33333333 DAYS
     Route: 048
     Dates: start: 20241029, end: 20241030

REACTIONS (7)
  - Tachypnoea [Recovering/Resolving]
  - Cyanosis [Unknown]
  - Eyelid oedema [Recovering/Resolving]
  - Discomfort [Recovering/Resolving]
  - Eye oedema [Recovering/Resolving]
  - Face oedema [Recovering/Resolving]
  - Product use in unapproved indication [Unknown]

NARRATIVE: CASE EVENT DATE: 20241029
